FAERS Safety Report 18861958 (Version 1)
Quarter: 2021Q1

REPORT INFORMATION
  Report Type: Spontaneous
  Country: HU (occurrence: HU)
  Receive Date: 20210208
  Receipt Date: 20210208
  Transmission Date: 20210420
  Serious: Yes (Other)
  Sender: FDA-Public Use
  Company Number: NVSC2021HU023157

PATIENT
  Age: 61 Year
  Sex: Female

DRUGS (13)
  1. SOLU?MEDROL [Concomitant]
     Active Substance: METHYLPREDNISOLONE SODIUM SUCCINATE
     Indication: PREMEDICATION
     Dosage: 80 MG, CYCLIC
     Route: 042
  2. OXALIPLATIN. [Suspect]
     Active Substance: OXALIPLATIN
     Indication: ADENOCARCINOMA PANCREAS
     Dosage: 110 MG, Q2MO
     Route: 042
     Dates: start: 20200911, end: 20210115
  3. KREON [Concomitant]
     Active Substance: PANCRELIPASE
     Indication: ADENOCARCINOMA PANCREAS
     Dosage: UNK, QD
     Route: 048
  4. ATROPINE. [Concomitant]
     Active Substance: ATROPINE
     Indication: PREMEDICATION
     Dosage: UNK, CYCLIC
     Route: 042
  5. CALCIMUSC [Concomitant]
     Active Substance: CALCIUM GLUCONATE
     Indication: PREMEDICATION
     Dosage: UNK, CYCLIC
     Route: 042
  6. NEO FERRO FOLGAMMA [Concomitant]
     Indication: MINERAL SUPPLEMENTATION
     Dosage: 114 MG/0,8 MG BID
     Route: 048
  7. CALCIUM FOLINATE [Concomitant]
     Active Substance: LEUCOVORIN CALCIUM
     Indication: ADENOCARCINOMA PANCREAS
     Dosage: 510 MG, Q2MO
     Route: 042
     Dates: start: 20200911, end: 20201218
  8. VITAMIN D3 [Concomitant]
     Active Substance: CHOLECALCIFEROL
     Indication: PROPHYLAXIS
     Dosage: 3000 IU, QD
     Route: 048
  9. QUAMATEL [Concomitant]
     Active Substance: FAMOTIDINE
     Indication: PREMEDICATION
     Dosage: 20 MG, CYCLIC
     Route: 042
  10. BENFOGAMMA [Concomitant]
     Indication: PROPHYLAXIS
     Dosage: 300 MG, QD
     Route: 048
  11. IRINOTECAN [Concomitant]
     Active Substance: IRINOTECAN
     Indication: ADENOCARCINOMA PANCREAS
     Dosage: 190 MG, Q2MO
     Route: 042
     Dates: start: 20200911, end: 20201218
  12. FLUOROURACIL. [Concomitant]
     Active Substance: FLUOROURACIL
     Indication: ADENOCARCINOMA PANCREAS
     Dosage: 300 MG, Q2MO
     Route: 042
     Dates: start: 20200911, end: 20201218
  13. ONDANSETRON [Concomitant]
     Active Substance: ONDANSETRON
     Indication: PREMEDICATION
     Dosage: UNK, CYCLIC
     Route: 042

REACTIONS (4)
  - Nausea [Recovered/Resolved]
  - Heart rate increased [Recovered/Resolved]
  - Vomiting [Recovered/Resolved]
  - Hypertension [Recovered/Resolved]

NARRATIVE: CASE EVENT DATE: 20210115
